FAERS Safety Report 6169662-5 (Version None)
Quarter: 2009Q2

REPORT INFORMATION
  Report Type: 
  Country: None (occurrence: None)
  Receive Date: 20090424
  Receipt Date: 20090205
  Transmission Date: 20091009
  Serious: No
  Sender: FDA-Public Use
  Company Number: ALL1-2009-00319

PATIENT
  Age: 37 Year
  Sex: Female
  Weight: 72.6 kg

DRUGS (4)
  1. ADDERALL XR 20 [Suspect]
     Dosage: 1X/DAY:QD, ORAL
     Route: 048
     Dates: start: 20071101, end: 20071201
  2. VYVANSE [Suspect]
     Indication: ATTENTION DEFICIT/HYPERACTIVITY DISORDER
     Dosage: 70 MG, 1X/DAY:QD, ORAL
     Route: 048
     Dates: start: 20071201, end: 20090204
  3. PRISTIQ [Concomitant]
  4. AVIANE (ETHINYLESTRADIOL, LEVONORGESTREL) [Concomitant]

REACTIONS (3)
  - MALAISE [None]
  - SLEEP DISORDER [None]
  - SLEEP TERROR [None]
